FAERS Safety Report 8333554-3 (Version None)
Quarter: 2012Q2

REPORT INFORMATION
  Report Type: 
  Country: None (occurrence: None)
  Receive Date: 20120503
  Receipt Date: 20120425
  Transmission Date: 20120825
  Serious: Yes (Hospitalization, Other)
  Sender: FDA-Public Use
  Company Number: PHHY2012CA005896

PATIENT
  Sex: Female

DRUGS (3)
  1. AFINITOR [Suspect]
     Indication: PANCREATIC CARCINOMA
     Dosage: 10 MG, EVERY DAY
     Route: 048
     Dates: end: 20120114
  2. SANDOSTATIN LAR [Suspect]
     Indication: PANCREATIC CARCINOMA
     Dosage: 20 MG, EVERY 4 WEEKS
     Route: 030
     Dates: start: 20110715
  3. AFINITOR [Suspect]
     Dosage: 5 MG, QD
     Route: 048
     Dates: start: 20120406

REACTIONS (8)
  - DRY SKIN [None]
  - RASH GENERALISED [None]
  - RASH MACULAR [None]
  - OEDEMA PERIPHERAL [None]
  - JOINT SWELLING [None]
  - ASTHENIA [None]
  - INTESTINAL OBSTRUCTION [None]
  - RASH PRURITIC [None]
